FAERS Safety Report 26177651 (Version 1)
Quarter: 2025Q4

REPORT INFORMATION
  Report Type: Spontaneous
  Country: US (occurrence: US)
  Receive Date: 20251219
  Receipt Date: 20251219
  Transmission Date: 20260117
  Serious: Yes (Other)
  Sender: SUPERNUS PHARMACEUTICALS, INC
  Company Number: US-ARIS GLOBAL-SUP202501-000088

PATIENT
  Age: 65 Year
  Sex: Female

DRUGS (2)
  1. TROKENDI XR [Suspect]
     Active Substance: TOPIRAMATE
     Indication: Migraine
     Dosage: TAKEN FROM PAST 5 YEARS
  2. TROKENDI XR [Suspect]
     Active Substance: TOPIRAMATE
     Indication: Tremor

REACTIONS (2)
  - Nephrolithiasis [Not Recovered/Not Resolved]
  - Product use in unapproved indication [Unknown]
